FAERS Safety Report 5537424-5 (Version None)
Quarter: 2007Q4

REPORT INFORMATION
  Report Type: 
  Country: None (occurrence: None)
  Receive Date: 20071207
  Receipt Date: 20071126
  Transmission Date: 20080405
  Serious: Yes (Hospitalization, Other)
  Sender: FDA-Public Use
  Company Number: TH-GILEAD-2007-0011149

PATIENT
  Age: 26 Year
  Sex: Male
  Weight: 53.3 kg

DRUGS (14)
  1. EMTRICITABINE [Suspect]
     Indication: HIV INFECTION
     Route: 048
     Dates: start: 20061218, end: 20061231
  2. EMTRICITABINE [Suspect]
     Route: 048
     Dates: start: 20070101
  3. DDI-EC [Suspect]
     Indication: HIV INFECTION
     Route: 048
     Dates: start: 20061218, end: 20061231
  4. DDI-EC [Suspect]
     Route: 048
     Dates: start: 20070101
  5. ATAZANAVIR [Suspect]
     Indication: HIV INFECTION
     Route: 048
     Dates: start: 20061218, end: 20061231
  6. ATAZANAVIR [Suspect]
     Route: 048
     Dates: start: 20070101
  7. DAPSONE [Suspect]
     Indication: PROPHYLAXIS
     Dates: start: 20061208, end: 20070103
  8. FLUCONAZOLE [Concomitant]
     Indication: PROPHYLAXIS
     Dates: start: 20061025, end: 20070103
  9. THEOPHYLLINE [Concomitant]
     Dates: start: 20061215, end: 20070103
  10. BROMHEXINE [Concomitant]
     Dates: start: 20061215, end: 20070103
  11. CETIRIZINE HCL [Concomitant]
     Dates: start: 20061215, end: 20061222
  12. TRIAMCINOLONE [Concomitant]
     Indication: SEBORRHOEIC DERMATITIS
  13. ACYCLOVIR [Concomitant]
     Indication: HERPES SIMPLEX
  14. PODOPHYLLIN [Concomitant]
     Indication: ANOGENITAL WARTS

REACTIONS (1)
  - DRUG HYPERSENSITIVITY [None]
